FAERS Safety Report 8806176 (Version 3)
Quarter: 2013Q1

REPORT INFORMATION
  Report Type: Spontaneous
  Country: US (occurrence: None)
  Receive Date: 20120917
  Receipt Date: 20121231
  Transmission Date: 20140127
  Serious: Yes (Other)
  Sender: FDA-Public Use
  Company Number: 2012SGN00349

PATIENT
  Age: 38 Year
  Sex: Female

DRUGS (9)
  1. BRENTUXIMAB VEDOTIN [Suspect]
     Indication: LYMPHOMATOID PAPULOSIS
     Dosage: Q21D
     Route: 042
     Dates: start: 20110804, end: 20120628
  2. AZITHROMYCIN (AZITHROMYCIN) [Concomitant]
  3. ORAL CONTRACEPTIVE NOS (ORAL CONTRACEPTIVE NOS) [Concomitant]
  4. FOLIC ACID (FOLIC ACID) [Concomitant]
  5. ADVAIR (FLUTICASONE PROPIONATE, SALMETEROL XINAFOATE) [Concomitant]
  6. XOPENEX (LEVOSALBUTAMOL) [Concomitant]
  7. CLARITIN (LORATADINE) [Concomitant]
  8. KLONOPIN (CLONAZEPAM) [Concomitant]
  9. PANTOPRAZOL (PANTOPRAZOLE SODIUM) [Concomitant]

REACTIONS (6)
  - Abortion spontaneous [None]
  - Pregnancy on oral contraceptive [None]
  - Neuropathy peripheral [None]
  - Drug dose omission [None]
  - Maternal exposure during pregnancy [None]
  - Pregnancy with contraceptive device [None]
